FAERS Safety Report 6388084-5 (Version None)
Quarter: 2009Q4

REPORT INFORMATION
  Report Type: 
  Country: None (occurrence: None)
  Receive Date: 20091005
  Receipt Date: 20090930
  Transmission Date: 20100525
  Serious: Yes (Other)
  Sender: FDA-Public Use
  Company Number: JP-EISAI INC.-E2020-05286-CLI-JP

PATIENT
  Sex: Female
  Weight: 40 kg

DRUGS (3)
  1. ARICEPT [Suspect]
     Route: 048
     Dates: start: 20080804, end: 20090805
  2. AMARYL [Concomitant]
  3. ACTOS [Concomitant]

REACTIONS (1)
  - PARKINSONISM [None]
